FAERS Safety Report 5318842-7 (Version None)
Quarter: 2007Q2

REPORT INFORMATION
  Report Type: 
  Country: None (occurrence: None)
  Receive Date: 20070508
  Receipt Date: 20070501
  Transmission Date: 20071010
  Serious: Yes (Disabling)
  Sender: FDA-Public Use
  Company Number: US-JNJFOC-20061101677

PATIENT
  Sex: Female
  Weight: 72.58 kg

DRUGS (2)
  1. ORTHO EVRA [Suspect]
     Indication: CONTRACEPTION
     Route: 062
  2. RITALIN [Concomitant]

REACTIONS (2)
  - GLAUCOMA [None]
  - RETINAL VEIN OCCLUSION [None]
